FAERS Safety Report 23290508 (Version 1)
Quarter: 2023Q4

REPORT INFORMATION
  Report Type: Spontaneous
  Country: RO (occurrence: RO)
  Receive Date: 20231213
  Receipt Date: 20231213
  Transmission Date: 20240110
  Serious: Yes (Other)
  Sender: FDA-Public Use
  Company Number: RO-GLPHARMA-23.0963

PATIENT
  Age: 68 Year
  Sex: Male

DRUGS (3)
  1. SUNITINIB [Suspect]
     Active Substance: SUNITINIB
     Indication: Metastatic renal cell carcinoma
     Dosage: 37.5 MG, Q4W
     Route: 048
  2. SUNITINIB [Suspect]
     Active Substance: SUNITINIB
     Dosage: 37.5 MG, Q4W
     Route: 048
  3. ZOLEDRONIC ACID [Suspect]
     Active Substance: ZOLEDRONIC ACID
     Indication: Metastatic renal cell carcinoma
     Dosage: 4.000MG
     Route: 065

REACTIONS (4)
  - Tooth avulsion [Not Recovered/Not Resolved]
  - Jaw fistula [Recovered/Resolved]
  - Jaw fistula [Not Recovered/Not Resolved]
  - Osteonecrosis of jaw [Not Recovered/Not Resolved]
